FAERS Safety Report 8791023 (Version 1)
Quarter: 2012Q4

REPORT INFORMATION
  Report Type: Spontaneous
  Country: US (occurrence: None)
  Receive Date: 20120910
  Receipt Date: 20120910
  Transmission Date: 20130627
  Serious: Yes (Hospitalization)
  Sender: FDA-Public Use
  Company Number: UTC-022730

PATIENT
  Age: 45 Year
  Sex: Female
  Weight: 60.91 kg

DRUGS (2)
  1. REMODULIN [Suspect]
     Indication: CHRONIC PULMONARY HEART DISEASE
     Dosage: 14.4 UG/KG (0.01 UG/KG, 1 IN 1 MIN), SUBCUTANEOUS
     Route: 058
     Dates: start: 20120503
  2. REVATIO (SILDENAFIL CITRATE) (UNKNOWN) [Concomitant]

REACTIONS (2)
  - Infusion site pain [None]
  - Infusion site haemorrhage [None]
